FAERS Safety Report 23228359 (Version 4)
Quarter: 2024Q1

REPORT INFORMATION
  Report Type: Spontaneous
  Country: US (occurrence: US)
  Receive Date: 20231125
  Receipt Date: 20240223
  Transmission Date: 20240410
  Serious: No
  Sender: FDA-Public Use
  Company Number: US-GLAXOSMITHKLINE-US2023AMR160906

PATIENT
  Age: 62 Year
  Sex: Female
  Weight: 49.9 kg

DRUGS (1)
  1. ZEJULA [Suspect]
     Active Substance: NIRAPARIB
     Indication: Ovarian cancer
     Dosage: 1 DF, QD
     Route: 048
     Dates: start: 20231108, end: 20231209

REACTIONS (13)
  - Anxiety [Recovering/Resolving]
  - Abdominal pain [Recovered/Resolved]
  - Constipation [Recovering/Resolving]
  - Hypertension [Recovering/Resolving]
  - Blood pressure systolic increased [Recovering/Resolving]
  - Asthenia [Recovering/Resolving]
  - Dyspnoea exertional [Recovering/Resolving]
  - Heart rate increased [Recovering/Resolving]
  - Decreased activity [Recovering/Resolving]
  - Therapy cessation [Unknown]
  - Taste disorder [Not Recovered/Not Resolved]
  - Decreased appetite [Recovering/Resolving]
  - Ill-defined disorder [Recovering/Resolving]

NARRATIVE: CASE EVENT DATE: 20231101
